FAERS Safety Report 15840553 (Version 4)
Quarter: 2020Q1

REPORT INFORMATION
  Report Type: Report from Study
  Country: US (occurrence: US)
  Receive Date: 20190118
  Receipt Date: 20200129
  Transmission Date: 20200409
  Serious: Yes (Other)
  Sender: FDA-Public Use
  Company Number: US-ROCHE-2244657

PATIENT
  Sex: Female

DRUGS (23)
  1. VENETOCLAX. [Suspect]
     Active Substance: VENETOCLAX
     Indication: NON-HODGKIN^S LYMPHOMA
     Route: 065
     Dates: start: 20181024
  2. VENETOCLAX. [Suspect]
     Active Substance: VENETOCLAX
     Route: 065
     Dates: start: 20181213
  3. OBINUTUZUMAB. [Suspect]
     Active Substance: OBINUTUZUMAB
     Route: 065
     Dates: start: 20181128
  4. LENALIDOMIDE [Suspect]
     Active Substance: LENALIDOMIDE
     Route: 065
     Dates: start: 20181115
  5. VENETOCLAX. [Suspect]
     Active Substance: VENETOCLAX
     Route: 065
     Dates: start: 20181108
  6. OBINUTUZUMAB. [Suspect]
     Active Substance: OBINUTUZUMAB
     Route: 065
     Dates: start: 20190103
  7. LENALIDOMIDE [Suspect]
     Active Substance: LENALIDOMIDE
     Route: 065
     Dates: start: 20181101
  8. LENALIDOMIDE [Suspect]
     Active Substance: LENALIDOMIDE
     Route: 065
  9. VENETOCLAX. [Suspect]
     Active Substance: VENETOCLAX
     Route: 065
     Dates: start: 20181115
  10. VENETOCLAX. [Suspect]
     Active Substance: VENETOCLAX
     Route: 065
     Dates: start: 20181128
  11. OBINUTUZUMAB. [Suspect]
     Active Substance: OBINUTUZUMAB
     Route: 065
     Dates: start: 20181213
  12. LENALIDOMIDE [Suspect]
     Active Substance: LENALIDOMIDE
     Indication: NON-HODGKIN^S LYMPHOMA
     Route: 065
     Dates: start: 20181024
  13. OBINUTUZUMAB. [Suspect]
     Active Substance: OBINUTUZUMAB
     Indication: NON-HODGKIN^S LYMPHOMA
     Route: 042
     Dates: start: 20181024
  14. OBINUTUZUMAB. [Suspect]
     Active Substance: OBINUTUZUMAB
     Route: 065
     Dates: start: 20181108
  15. LENALIDOMIDE [Suspect]
     Active Substance: LENALIDOMIDE
     Route: 065
  16. VENETOCLAX. [Suspect]
     Active Substance: VENETOCLAX
     Route: 065
     Dates: start: 20190103
  17. OBINUTUZUMAB. [Suspect]
     Active Substance: OBINUTUZUMAB
     Route: 065
     Dates: start: 20181115
  18. LENALIDOMIDE [Suspect]
     Active Substance: LENALIDOMIDE
     Route: 065
     Dates: start: 20181108
  19. VENETOCLAX. [Suspect]
     Active Substance: VENETOCLAX
     Route: 065
     Dates: start: 20181101
  20. LENALIDOMIDE [Suspect]
     Active Substance: LENALIDOMIDE
     Route: 065
     Dates: start: 20190103
  21. LENALIDOMIDE [Suspect]
     Active Substance: LENALIDOMIDE
     Route: 065
     Dates: start: 20181128
  22. LENALIDOMIDE [Suspect]
     Active Substance: LENALIDOMIDE
     Route: 065
     Dates: start: 20181213
  23. OBINUTUZUMAB. [Suspect]
     Active Substance: OBINUTUZUMAB
     Route: 065
     Dates: start: 20181101

REACTIONS (6)
  - Neutrophil count decreased [Recovered/Resolved]
  - Neutrophil count decreased [Recovered/Resolved]
  - White blood cell count decreased [Recovered/Resolved]
  - Neutropenia [Not Recovered/Not Resolved]
  - White blood cell count decreased [Recovered/Resolved]
  - Lymphocyte count decreased [Recovered/Resolved]

NARRATIVE: CASE EVENT DATE: 20181024
